FAERS Safety Report 6883043 (Version 3)
Quarter: 2013Q1

REPORT INFORMATION
  Report Type: Spontaneous
  Country: DE (occurrence: None)
  Receive Date: 20081230
  Receipt Date: 20121231
  Transmission Date: 20140127
  Serious: Yes (Other)
  Sender: FDA-Public Use
  Company Number: 2008AP003509

PATIENT
  Age: 24 Year
  Sex: Female

DRUGS (6)
  1. TIMONIL [Suspect]
     Dosage: 450 MG; QD PO, 300 MG; PO; QD
     Route: 048
     Dates: start: 200801, end: 20080814
  2. VENLAFAXINE HYDROCHLORIDE [Suspect]
     Route: 048
     Dates: start: 20080828, end: 20080829
  3. MIRTAZAPINE [Suspect]
     Route: 048
     Dates: start: 200801, end: 20080818
  4. QUILONUM [Suspect]
     Route: 048
     Dates: start: 20080818, end: 20080825
  5. TAXILAN [Suspect]
     Route: 048
     Dates: start: 20080905, end: 20080907
  6. DIAZEPAM (DIAZEPAM) [Concomitant]

REACTIONS (3)
  - Tremor [None]
  - Pain [None]
  - Myoclonus [None]
